APPROVED DRUG PRODUCT: GENTAMICIN SULFATE
Active Ingredient: GENTAMICIN SULFATE
Strength: EQ 3MG BASE/ML
Dosage Form/Route: SOLUTION/DROPS;OPHTHALMIC
Application: A062932 | Product #001
Applicant: PACO RESEARCH CORP
Approved: Nov 7, 1988 | RLD: No | RS: No | Type: DISCN